FAERS Safety Report 5976001-9 (Version None)
Quarter: 2008Q4

REPORT INFORMATION
  Report Type: 
  Country: None (occurrence: None)
  Receive Date: 20081202
  Receipt Date: 20081125
  Transmission Date: 20090506
  Serious: Yes (Other)
  Sender: FDA-Public Use
  Company Number: PHHY2008FR29662

PATIENT
  Age: 81 Year
  Sex: Female

DRUGS (1)
  1. ACLASTA [Suspect]
     Dosage: UNK
     Route: 042

REACTIONS (4)
  - BRONCHITIS [None]
  - CONFUSIONAL STATE [None]
  - LUNG INFECTION [None]
  - PYREXIA [None]
